FAERS Safety Report 14733332 (Version 1)
Quarter: 2018Q2

REPORT INFORMATION
  Report Type: Spontaneous
  Country: US (occurrence: US)
  Receive Date: 20180409
  Receipt Date: 20180409
  Transmission Date: 20180711
  Serious: Yes (Hospitalization, Other)
  Sender: FDA-Public Use
  Company Number: US-ASTELLAS-2018US016673

PATIENT
  Sex: Female

DRUGS (1)
  1. PROGRAF [Suspect]
     Active Substance: TACROLIMUS\TACROLIMUS ANHYDROUS
     Indication: PRODUCT USED FOR UNKNOWN INDICATION
     Dosage: UNK UNK, UNKNOWN FREQ.
     Route: 065

REACTIONS (10)
  - Cardiac disorder [Unknown]
  - Gangrene [Unknown]
  - Ankle fracture [Unknown]
  - Fall [Unknown]
  - Hepatic vascular thrombosis [Unknown]
  - Malaise [Unknown]
  - Lower limb fracture [Unknown]
  - Amnesia [Unknown]
  - Hip fracture [Unknown]
  - Urinary incontinence [Unknown]
